FAERS Safety Report 19818375 (Version 1)
Quarter: 2021Q3

REPORT INFORMATION
  Report Type: Other
  Country: CA (occurrence: CA)
  Receive Date: 20210911
  Receipt Date: 20210911
  Transmission Date: 20211014
  Serious: No
  Sender: FDA-Public Use
  Company Number: CA-ROCHE-2907656

PATIENT
  Sex: Male

DRUGS (2)
  1. OCREVUS [Suspect]
     Active Substance: OCRELIZUMAB
     Indication: RELAPSING-REMITTING MULTIPLE SCLEROSIS
     Dosage: MORE DOSAGE INFORMATION IS 300 MG AT DAY 0 AND 14, THEN 600 MG EVERY 6 MONTH
     Route: 042
     Dates: start: 20190711
  2. TYLENOL COLD AND FLU DAYTIME [Concomitant]

REACTIONS (4)
  - SARS-CoV-2 test positive [Not Recovered/Not Resolved]
  - Oral herpes [Not Recovered/Not Resolved]
  - Cough [Not Recovered/Not Resolved]
  - Influenza like illness [Not Recovered/Not Resolved]
